FAERS Safety Report 22145847 (Version 1)
Quarter: 2023Q1

REPORT INFORMATION
  Report Type: Spontaneous
  Country: US (occurrence: None)
  Receive Date: 20230327
  Receipt Date: 20230327
  Transmission Date: 20230417
  Serious: Yes (Death)
  Sender: FDA-Public Use
  Company Number: None

PATIENT
  Age: 71 Year
  Sex: Male
  Weight: 62.6 kg

DRUGS (17)
  1. CAPECITABINE [Suspect]
     Active Substance: CAPECITABINE
     Indication: Carcinoid tumour
     Dosage: FREQUENCY : TWICE A DAY;?
     Route: 048
     Dates: end: 20230325
  2. CAPECITABINE [Suspect]
     Active Substance: CAPECITABINE
     Indication: Carcinoid tumour
     Dosage: FREQUENCY : TWICE A DAY;?
     Route: 048
     Dates: end: 20230325
  3. AMMONIUM LACTATE [Concomitant]
     Active Substance: AMMONIUM LACTATE
  4. CALCIUM CARBONATE\CHOLECALCIFEROL [Concomitant]
     Active Substance: CALCIUM CARBONATE\CHOLECALCIFEROL
  5. CARDURA [Concomitant]
     Active Substance: DOXAZOSIN MESYLATE
  6. CARVEDILOL [Concomitant]
     Active Substance: CARVEDILOL
  7. CELEXA [Concomitant]
     Active Substance: CITALOPRAM HYDROBROMIDE
  8. CLONAZEPAM [Concomitant]
     Active Substance: CLONAZEPAM
  9. DUO-NEB [Concomitant]
  10. SACCHAROMYCES CEREVISIAE [Concomitant]
     Active Substance: SACCHAROMYCES CEREVISIAE
  11. LASIX [Concomitant]
     Active Substance: FUROSEMIDE
  12. LOSARTAN [Concomitant]
     Active Substance: LOSARTAN
  13. ONDANSETRON [Concomitant]
     Active Substance: ONDANSETRON
  14. PATNOPRAZOLE [Concomitant]
  15. POTASSIUM [Concomitant]
     Active Substance: POTASSIUM
  16. SANDOSTATIN [Concomitant]
     Active Substance: OCTREOTIDE ACETATE
  17. ZIRABEV [Concomitant]
     Active Substance: BEVACIZUMAB-BVZR

REACTIONS (1)
  - Death [None]

NARRATIVE: CASE EVENT DATE: 20220325
